FAERS Safety Report 18367430 (Version 3)
Quarter: 2021Q2

REPORT INFORMATION
  Report Type: Other
  Country: NL (occurrence: ES)
  Receive Date: 20201009
  Receipt Date: 20210415
  Transmission Date: 20210717
  Serious: Yes (Other)
  Sender: FDA-Public Use
  Company Number: NL-KOWA-20EU002926

PATIENT
  Age: 67 Year
  Sex: Female
  Weight: 101 kg

DRUGS (16)
  1. SINOGAN [LEVOMEPROMAZINE MALEATE] [Suspect]
     Active Substance: LEVOMEPROMAZINE MALEATE
     Indication: PRODUCT USED FOR UNKNOWN INDICATION
     Dosage: UNK, QD (0?0?0?1)
     Route: 048
     Dates: end: 2019
  2. NOREBOX [REBOXETINE] [Suspect]
     Active Substance: REBOXETINE
     Indication: ANTIDEPRESSANT THERAPY
     Dosage: UNK, BID (1?0?1?0)
     Route: 048
     Dates: end: 2019
  3. DIAZEPAM. [Suspect]
     Active Substance: DIAZEPAM
     Indication: PRODUCT USED FOR UNKNOWN INDICATION
     Dosage: UNK, TID (1?1?1?0)
  4. AKINETON [Concomitant]
     Active Substance: BIPERIDEN HYDROCHLORIDE
     Indication: PARKINSONISM
     Dosage: UNK, QD (1?0?0?0)
  5. ZARELIS [Suspect]
     Active Substance: VENLAFAXINE HYDROCHLORIDE
     Indication: PRODUCT USED FOR UNKNOWN INDICATION
     Dosage: UNK, QD (1?0?0?0)
  6. DORMODOR [Suspect]
     Active Substance: FLURAZEPAM HYDROCHLORIDE
     Indication: PRODUCT USED FOR UNKNOWN INDICATION
     Dosage: UNK, QD,0?0?0?1
  7. LIDOCAINE. [Suspect]
     Active Substance: LIDOCAINE
     Indication: PRODUCT USED FOR UNKNOWN INDICATION
     Dosage: UNK, UNK PRN
  8. OSTEOPOR [COLLAGEN?HYDROXYAPATIT?COMPLEX] [Suspect]
     Active Substance: COLLAGEN\TRIBASIC CALCIUM PHOSPHATE
     Indication: PRODUCT USED FOR UNKNOWN INDICATION
     Dosage: UNK, QD (1?0?0?0)
  9. ZOMARIST [METFORMIN HYDROCHLORIDE;VILDAGLIPTIN] [Suspect]
     Active Substance: METFORMIN HYDROCHLORIDE\VILDAGLIPTIN
     Indication: PRODUCT USED FOR UNKNOWN INDICATION
     Dosage: UNK, BID (1?0?1?0)
  10. ARIPIPRAZOLE. [Suspect]
     Active Substance: ARIPIPRAZOLE
     Indication: PRODUCT USED FOR UNKNOWN INDICATION
     Dosage: UNK, QD (1?0?0?0)
  11. AMLODIPINE [Suspect]
     Active Substance: AMLODIPINE BESYLATE
     Indication: BLOOD PRESSURE INCREASED
     Dosage: UNK UNK, QD
  12. PARACETAMOL [Suspect]
     Active Substance: ACETAMINOPHEN
     Indication: PRODUCT USED FOR UNKNOWN INDICATION
     Dosage: UNK, PRN (IF NEEDED)
  13. PITAVASTATIN. [Suspect]
     Active Substance: PITAVASTATIN CALCIUM
     Indication: PRODUCT USED FOR UNKNOWN INDICATION
     Dosage: UNK UNK, QD (0?0?1?0)
  14. EUTIROX [Suspect]
     Active Substance: LEVOTHYROXINE SODIUM
     Indication: PRODUCT USED FOR UNKNOWN INDICATION
     Dosage: UNK, QD (1?0?0?0)
  15. KARVEZIDE [Suspect]
     Active Substance: HYDROCHLOROTHIAZIDE\IRBESARTAN
     Indication: PRODUCT USED FOR UNKNOWN INDICATION
     Dosage: UNK, QD (1?0?0?0)
  16. ACETYLSALICYLIC ACID [Suspect]
     Active Substance: ASPIRIN
     Indication: PRODUCT USED FOR UNKNOWN INDICATION
     Dosage: UNK, QD (0?1?0?0)

REACTIONS (10)
  - Oedema peripheral [Recovered/Resolved]
  - Extrapyramidal disorder [Recovered/Resolved]
  - Heart rate increased [Recovered/Resolved]
  - Tremor [Unknown]
  - Treatment noncompliance [Recovered/Resolved]
  - Hyperhidrosis [Unknown]
  - Muscle rigidity [Recovered/Resolved]
  - Hypertension [Recovered/Resolved]
  - Weight increased [Recovered/Resolved]
  - Akinesia [Recovered/Resolved]

NARRATIVE: CASE EVENT DATE: 2018
